FAERS Safety Report 17928417 (Version 1)
Quarter: 2020Q2

REPORT INFORMATION
  Report Type: Report from Study
  Country: None (occurrence: US)
  Receive Date: 20200622
  Receipt Date: 20200622
  Transmission Date: 20200714
  Serious: Yes (Other)
  Sender: FDA-Public Use
  Company Number: US-ABBVIE-20K-163-3446097-00

PATIENT
  Age: 41 Year
  Sex: Female
  Weight: 140.74 kg

DRUGS (7)
  1. HUMIRA [Suspect]
     Active Substance: ADALIMUMAB
     Indication: CROHN^S DISEASE
     Route: 058
     Dates: start: 201906
  2. POTASSIUM [Concomitant]
     Active Substance: POTASSIUM
     Indication: HYPOKALAEMIA
  3. ZOLOFT [Concomitant]
     Active Substance: SERTRALINE HYDROCHLORIDE
     Indication: ANXIETY
  4. NORVASC [Concomitant]
     Active Substance: AMLODIPINE BESYLATE
     Indication: HYPERTENSION
  5. HUMIRA [Suspect]
     Active Substance: ADALIMUMAB
     Route: 058
     Dates: start: 202001
  6. COZARIL [Concomitant]
     Indication: HYPERTENSION
  7. PRILOSEC [Concomitant]
     Active Substance: OMEPRAZOLE MAGNESIUM
     Indication: DYSPEPSIA

REACTIONS (18)
  - Sunburn [Recovering/Resolving]
  - Increased tendency to bruise [Not Recovered/Not Resolved]
  - Device issue [Recovered/Resolved]
  - Photosensitivity reaction [Not Recovered/Not Resolved]
  - Incorrect dose administered [Recovered/Resolved]
  - Gastrointestinal mucosal exfoliation [Unknown]
  - Gastrointestinal obstruction [Recovered/Resolved]
  - Weight increased [Recovering/Resolving]
  - Injury associated with device [Recovered/Resolved]
  - Injection site injury [Recovering/Resolving]
  - Fatigue [Recovered/Resolved]
  - Injection site pain [Recovered/Resolved]
  - Headache [Recovered/Resolved]
  - Crohn^s disease [Not Recovered/Not Resolved]
  - Malaise [Recovered/Resolved]
  - Haemorrhage [Not Recovered/Not Resolved]
  - Arthralgia [Unknown]
  - Injection site haemorrhage [Recovered/Resolved]

NARRATIVE: CASE EVENT DATE: 202001
